FAERS Safety Report 6983531-X (Version None)
Quarter: 2010Q3

REPORT INFORMATION
  Report Type: 
  Country: None (occurrence: None)
  Receive Date: 20100914
  Receipt Date: 20080709
  Transmission Date: 20110219
  Serious: No
  Sender: FDA-Public Use
  Company Number: US-WYE-H05030308

PATIENT
  Age: 55 Year
  Sex: Female
  Weight: 56.75 kg

DRUGS (3)
  1. ADVIL LIQUI-GELS [Suspect]
     Indication: ARTHRITIS
     Dosage: 2-3 TABLETS DAILY OR TWICE DAILY
     Route: 048
  2. ADVIL LIQUI-GELS [Suspect]
     Indication: BURSITIS
  3. ADVIL LIQUI-GELS [Suspect]
     Indication: PAIN

REACTIONS (2)
  - ALOPECIA [None]
  - INAPPROPRIATE SCHEDULE OF DRUG ADMINISTRATION [None]
